FAERS Safety Report 24142017 (Version 3)
Quarter: 2024Q3

REPORT INFORMATION
  Report Type: Spontaneous
  Country: US (occurrence: US)
  Receive Date: 20240726
  Receipt Date: 20240920
  Transmission Date: 20241016
  Serious: Yes (Other)
  Sender: BAYER
  Company Number: US-BAYER-2024A105222

PATIENT
  Age: 76 Year
  Sex: Male

DRUGS (20)
  1. ASPIRIN [Suspect]
     Active Substance: ASPIRIN
  2. BAYER LOW DOSE [Concomitant]
     Active Substance: ASPIRIN
  3. VYNDAMAX [Concomitant]
     Active Substance: TAFAMIDIS
     Indication: Amyloidosis
     Dosage: 1 DF, QD
     Route: 048
     Dates: start: 20201013
  4. DEXILANT [Concomitant]
     Active Substance: DEXLANSOPRAZOLE
     Dosage: 30 MG
  5. DIPHENHYDRAMINE [Concomitant]
     Active Substance: DIPHENHYDRAMINE
     Dosage: 25 MG
  6. Dulcolax [Concomitant]
     Dosage: 5 MG
  7. FOLIC ACID [Concomitant]
     Active Substance: FOLIC ACID
     Dosage: 1000 ?G
  8. CHONDROITIN SULFATE (BOVINE)\GLUCOSAMINE HYDROCHLORIDE [Concomitant]
     Active Substance: CHONDROITIN SULFATE (BOVINE)\GLUCOSAMINE HYDROCHLORIDE
  9. LEVOTHYROXINE SODIUM [Concomitant]
     Active Substance: LEVOTHYROXINE SODIUM
     Dosage: 50 ?G
  10. LIPITOR [Concomitant]
     Active Substance: ATORVASTATIN CALCIUM
     Dosage: 10 MG
  11. LUMIGAN [Concomitant]
     Active Substance: BIMATOPROST
  12. Macular Health Formula [Concomitant]
  13. MAGNESIUM [Concomitant]
     Active Substance: MAGNESIUM
     Dosage: 500 MG
  14. MELATONIN [Concomitant]
     Active Substance: MELATONIN
  15. DIETARY SUPPLEMENT\HERBALS\MILK THISTLE [Concomitant]
     Active Substance: MILK THISTLE
     Dosage: 1000 MG
  16. DIMETHYL SULFONE [Concomitant]
     Active Substance: DIMETHYL SULFONE
     Dosage: 500 MG
  17. ONPATTRO [Concomitant]
     Active Substance: PATISIRAN SODIUM
  18. TYLENOL [Concomitant]
     Active Substance: ACETAMINOPHEN
     Dosage: 500 MG
  19. VITAMIN A [Concomitant]
     Active Substance: VITAMIN A
     Dosage: 8000 U
  20. VITAMIN D3 [Concomitant]
     Active Substance: CHOLECALCIFEROL
     Dosage: 5000 U

REACTIONS (9)
  - Cardiac pacemaker insertion [None]
  - Atrial fibrillation [Recovered/Resolved]
  - Fatigue [Not Recovered/Not Resolved]
  - Back pain [Not Recovered/Not Resolved]
  - Spinal stenosis [Not Recovered/Not Resolved]
  - Dizziness [Not Recovered/Not Resolved]
  - Oxygen saturation decreased [Not Recovered/Not Resolved]
  - Hypotension [Not Recovered/Not Resolved]
  - COVID-19 [Not Recovered/Not Resolved]

NARRATIVE: CASE EVENT DATE: 20240327
